FAERS Safety Report 20747976 (Version 2)
Quarter: 2022Q2

REPORT INFORMATION
  Report Type: Spontaneous
  Country: US (occurrence: US)
  Receive Date: 20220425
  Receipt Date: 20220519
  Transmission Date: 20220721
  Serious: No
  Sender: FDA-Public Use
  Company Number: US-AMGEN-USASP2022062575

PATIENT
  Age: 84 Year
  Sex: Female
  Weight: 60.317 kg

DRUGS (2)
  1. PROLIA [Suspect]
     Active Substance: DENOSUMAB
     Indication: Osteopenia
     Dosage: 60 MILLIGRAM, Q6MO
     Route: 065
     Dates: start: 20220408
  2. PROLIA [Suspect]
     Active Substance: DENOSUMAB
     Indication: Off label use

REACTIONS (2)
  - Product storage error [Unknown]
  - Off label use [Unknown]

NARRATIVE: CASE EVENT DATE: 20220101
